FAERS Safety Report 10736110 (Version 1)
Quarter: 2015Q1

REPORT INFORMATION
  Report Type: Spontaneous
  Country: US (occurrence: US)
  Receive Date: 20150126
  Receipt Date: 20150126
  Transmission Date: 20150721
  Serious: Yes (Death)
  Sender: FDA-Public Use
  Company Number: US-MERCK-1501USA007573

PATIENT
  Age: 25 Year
  Sex: Male

DRUGS (2)
  1. CHLOR-TRIMETON [Suspect]
     Active Substance: CHLORPHENIRAMINE MALEATE
     Dosage: UNK
     Route: 048
  2. DEXTROMETHORPHAN [Suspect]
     Active Substance: DEXTROMETHORPHAN
     Dosage: UNK

REACTIONS (2)
  - Drug administration error [Fatal]
  - Toxicity to various agents [Fatal]
